FAERS Safety Report 9143798 (Version 1)
Quarter: 2013Q1

REPORT INFORMATION
  Report Type: Spontaneous
  Country: DE (occurrence: DE)
  Receive Date: 20130306
  Receipt Date: 20130306
  Transmission Date: 20140127
  Serious: Yes (Hospitalization)
  Sender: FDA-Public Use
  Company Number: DE-ROCHE-1188377

PATIENT
  Sex: Female
  Weight: 74 kg

DRUGS (11)
  1. MABTHERA [Suspect]
     Indication: B-CELL LYMPHOMA
     Route: 065
  2. MABTHERA [Suspect]
     Route: 065
     Dates: start: 2007
  3. MABTHERA [Suspect]
     Route: 042
     Dates: start: 20130117
  4. BENDAMUSTINE [Concomitant]
     Indication: B-CELL LYMPHOMA
     Route: 065
     Dates: start: 2007
  5. PARACETAMOL [Concomitant]
     Route: 048
     Dates: start: 20130117, end: 20130117
  6. CLEMASTIN [Concomitant]
     Route: 042
     Dates: start: 20130117, end: 20130117
  7. PREDNISOLUT [Concomitant]
     Route: 042
     Dates: start: 20130117, end: 20130117
  8. ESOMEPRAZOLE [Concomitant]
  9. RAMIPRIL [Concomitant]
  10. ASS [Concomitant]
  11. SIMVASTATIN [Concomitant]

REACTIONS (4)
  - Asthenia [Recovering/Resolving]
  - Pyrexia [Recovering/Resolving]
  - Myalgia [Recovering/Resolving]
  - C-reactive protein increased [Recovering/Resolving]
